FAERS Safety Report 4277852-1 (Version None)
Quarter: 2004Q1

REPORT INFORMATION
  Report Type: 
  Country: None (occurrence: None)
  Receive Date: 20040123
  Receipt Date: 20031014
  Transmission Date: 20041129
  Serious: Yes (Hospitalization)
  Sender: FDA-Public Use
  Company Number: PHBS2003JP11365

PATIENT
  Age: 23 Year
  Sex: Male
  Weight: 73 kg

DRUGS (8)
  1. PHENYTOIN [Concomitant]
     Dosage: 130 MG/DAY
     Route: 048
     Dates: start: 20030401, end: 20031001
  2. TEGRETOL [Suspect]
     Indication: EPILEPSY
     Dosage: 800 MG/DAY
     Route: 048
     Dates: end: 20031001
  3. SELENICA-R [Suspect]
     Dosage: 1200 MG/DAY
     Route: 048
     Dates: start: 20031001
  4. SELENICA-R [Suspect]
     Dosage: 1600 MG/DAY
     Route: 048
     Dates: end: 20031001
  5. EXCEGRAN [Suspect]
     Dosage: 700 MG/DAY
     Route: 048
     Dates: start: 20031001
  6. EXCEGRAN [Suspect]
     Dosage: 500 MG/DAY
     Route: 048
     Dates: end: 20031001
  7. CLOBAZAM [Concomitant]
     Dosage: 30 MG/DAY
     Route: 048
  8. LACTULOSE [Concomitant]
     Dosage: 60 ML/DAY
     Route: 048

REACTIONS (2)
  - DIFFICULTY IN WALKING [None]
  - DIZZINESS [None]
